FAERS Safety Report 15470582 (Version 1)
Quarter: 2018Q4

REPORT INFORMATION
  Report Type: Spontaneous
  Country: CN (occurrence: CN)
  Receive Date: 20181005
  Receipt Date: 20181005
  Transmission Date: 20190205
  Serious: Yes (Hospitalization, Other)
  Sender: FDA-Public Use
  Company Number: CN-SA-2018SA259566

PATIENT
  Age: 31 Year
  Sex: Female

DRUGS (5)
  1. LIDOCAINE. [Suspect]
     Active Substance: LIDOCAINE
     Dosage: A TOTAL OF 200 MG LIDOCAINE WAS USED
  2. PETHIDINE HYDROCHLORIDE [Suspect]
     Active Substance: MEPERIDINE HYDROCHLORIDE
     Dosage: 30 MG, UNK
     Route: 042
  3. POLYGELINE [Suspect]
     Active Substance: POLYGELINE
     Indication: CSF VOLUME
     Dosage: 20 ML, INJECTING
     Route: 037
  4. POLYGELINE [Suspect]
     Active Substance: POLYGELINE
     Indication: POST LUMBAR PUNCTURE SYNDROME
  5. LIDOCAINE. [Suspect]
     Active Substance: LIDOCAINE
     Indication: ANAESTHESIA
     Dosage: 2%; INI?TIAL DOSE OF 60 MG WITHOUT EPINEPHRINE

REACTIONS (8)
  - Pain [Recovered/Resolved]
  - Intentional product misuse [Unknown]
  - Paraesthesia [Recovered/Resolved]
  - Oedema peripheral [Recovered/Resolved]
  - Seizure [Not Recovered/Not Resolved]
  - Loss of consciousness [Unknown]
  - Exposure during pregnancy [Unknown]
  - Hypoaesthesia [Recovered/Resolved]
